FAERS Safety Report 5324755-7 (Version None)
Quarter: 2007Q2

REPORT INFORMATION
  Report Type: 
  Country: None (occurrence: None)
  Receive Date: 20070515
  Receipt Date: 20070509
  Transmission Date: 20071010
  Serious: Yes (Other)
  Sender: FDA-Public Use
  Company Number: PHBS2007BR07934

PATIENT
  Age: 33 Year
  Sex: Female
  Weight: 61 kg

DRUGS (8)
  1. FORASEQ [Suspect]
     Indication: COUGH
     Dosage: 2 DF, BID
     Dates: start: 20070508, end: 20070509
  2. FORASEQ [Suspect]
     Dosage: 1 DF, BID
     Dates: start: 20070509
  3. FORASEQ [Suspect]
     Dosage: 1 DF, BID
     Dates: start: 20070504, end: 20070508
  4. ATENOLOL [Concomitant]
     Indication: HYPERTENSION
     Dosage: 50 MG/DAY
     Route: 048
     Dates: start: 20060101
  5. INDAPEN [Concomitant]
     Indication: GLUCOSE TOLERANCE IMPAIRED
     Dosage: 1.5 MG/DAY
     Route: 048
     Dates: start: 20061201
  6. MICRODIOL [Concomitant]
     Indication: CONTRACEPTION
     Dosage: 1 TAB/DAY
  7. SYNTHROID [Concomitant]
     Indication: HYPOTHYROIDISM
     Dosage: 88 UG/DAY
  8. METFORMIN HCL [Concomitant]
     Indication: GLUCOSE TOLERANCE IMPAIRED
     Dosage: 500 MG/DAY

REACTIONS (3)
  - FORMICATION [None]
  - TACHYCARDIA [None]
  - TREMOR [None]
